FAERS Safety Report 23874324 (Version 2)
Quarter: 2024Q3

REPORT INFORMATION
  Report Type: Spontaneous
  Country: CA (occurrence: CA)
  Receive Date: 20240520
  Receipt Date: 20240704
  Transmission Date: 20241017
  Serious: Yes (Hospitalization, Other)
  Sender: PFIZER
  Company Number: CA-PFIZER INC-202400125083

PATIENT
  Age: 87 Year
  Sex: Male
  Weight: 62.132 kg

DRUGS (1)
  1. VYNDAMAX [Suspect]
     Active Substance: TAFAMIDIS
     Indication: Cardiac amyloidosis
     Dosage: 61 MG, 1X/DAY
     Route: 048
     Dates: start: 20230629

REACTIONS (2)
  - Dyspnoea [Recovered/Resolved]
  - Aortic stenosis [Unknown]

NARRATIVE: CASE EVENT DATE: 20240301
